FAERS Safety Report 17464760 (Version 1)
Quarter: 2020Q1

REPORT INFORMATION
  Report Type: Spontaneous
  Country: US (occurrence: US)
  Receive Date: 20200226
  Receipt Date: 20200226
  Transmission Date: 20200409
  Serious: No
  Sender: FDA-Public Use
  Company Number: US-ROCHE-2480395

PATIENT
  Sex: Male

DRUGS (1)
  1. ALECENSA [Suspect]
     Active Substance: ALECTINIB HYDROCHLORIDE
     Indication: LUNG NEOPLASM MALIGNANT
     Dosage: ONGOING : YES
     Route: 048
     Dates: start: 20190215

REACTIONS (5)
  - Headache [Unknown]
  - Pain [Unknown]
  - Nausea [Unknown]
  - Dizziness [Unknown]
  - Muscular weakness [Unknown]
